FAERS Safety Report 6095053-1 (Version None)
Quarter: 2009Q1

REPORT INFORMATION
  Report Type: 
  Country: None (occurrence: None)
  Receive Date: 20090227
  Receipt Date: 20080108
  Transmission Date: 20090719
  Serious: No
  Sender: FDA-Public Use
  Company Number: A0701978A

PATIENT
  Age: 57 Year
  Sex: Male

DRUGS (3)
  1. LAMICTAL [Suspect]
     Indication: DEPRESSION
     Dosage: 150MG PER DAY
     Route: 048
     Dates: start: 20071024, end: 20071226
  2. CELEXA [Concomitant]
  3. KLONOPIN [Concomitant]

REACTIONS (1)
  - RASH [None]
